FAERS Safety Report 14942547 (Version 1)
Quarter: 2018Q2

REPORT INFORMATION
  Report Type: Spontaneous
  Country: IT (occurrence: IT)
  Receive Date: 20180528
  Receipt Date: 20180528
  Transmission Date: 20180711
  Serious: Yes (Other)
  Sender: FDA-Public Use
  Company Number: IT-PAN-2018-000255

PATIENT
  Age: 73 Year
  Sex: Male

DRUGS (3)
  1. LAMIVUDINE. [Concomitant]
     Active Substance: LAMIVUDINE
     Indication: HEPATITIS B
  2. IMMUNOGLOBULIN ANTI-S [Concomitant]
     Indication: HEPATITIS B
  3. TACROLIMUS. [Suspect]
     Active Substance: TACROLIMUS
     Indication: IMMUNOSUPPRESSANT DRUG THERAPY

REACTIONS (1)
  - Colorectal cancer [Unknown]
